FAERS Safety Report 6693836-8 (Version None)
Quarter: 2010Q2

REPORT INFORMATION
  Report Type: 
  Country: None (occurrence: None)
  Receive Date: 20100421
  Receipt Date: 20100408
  Transmission Date: 20101027
  Serious: Yes (Other)
  Sender: FDA-Public Use
  Company Number: TPH-00252

PATIENT
  Age: 38 Year
  Sex: Female
  Weight: 83.4 kg

DRUGS (3)
  1. TRIPHASIL-21 [Suspect]
     Indication: CONTRACEPTION
     Dosage: 1 TABLET, DAILY, ORAL
     Route: 048
  2. TRIVORA 28     (EE/LEVO) [Suspect]
     Indication: CONTRACEPTION
     Dosage: 1 TABLET, DAILY, ORAL
     Route: 048
     Dates: start: 20060101
  3. ENPRESSE (ETHINYL ESTRADIOL, LEVONORGESTREL) [Suspect]
     Indication: CONTRACEPTION
     Dosage: 1 TABLET, DAILY, ORAL
     Route: 048

REACTIONS (5)
  - FOCAL NODULAR HYPERPLASIA [None]
  - HEPATIC ADENOMA [None]
  - HEPATIC NEOPLASM [None]
  - HEPATIC STEATOSIS [None]
  - LIVER FUNCTION TEST ABNORMAL [None]
